FAERS Safety Report 5411799-X (Version None)
Quarter: 2007Q3

REPORT INFORMATION
  Report Type: 
  Country: None (occurrence: None)
  Receive Date: 20070813
  Receipt Date: 20070808
  Transmission Date: 20080115
  Serious: Yes (Death)
  Sender: FDA-Public Use
  Company Number: PHEH2007US10543

PATIENT
  Age: 79 Year
  Sex: Male

DRUGS (13)
  1. EXJADE [Suspect]
     Indication: IRON METABOLISM DISORDER
     Dosage: 1000 MG, QD
     Route: 048
     Dates: start: 20061003
  2. VITAMIN B6 [Concomitant]
     Dosage: 100 MG, QD
  3. PROTONIX [Concomitant]
     Dosage: 40 MG, QD
  4. RED BLOOD CELLS [Concomitant]
     Indication: TRANSFUSION
     Dates: start: 20070508
  5. ARANESP [Concomitant]
     Dates: end: 20070508
  6. LORTAB [Concomitant]
     Indication: PAIN
     Dosage: 5/500MG, PRN
  7. WARFARIN SODIUM [Concomitant]
     Dosage: 5 MG, AS DIRECTED
  8. TEMAZEPAM [Concomitant]
     Indication: SLEEP DISORDER
     Dosage: 30 MG, QHS
  9. ALPRAZOLAM [Concomitant]
     Dosage: 0.25 MG, TID
  10. LANOXIN [Concomitant]
     Dosage: 125 UG, QD
  11. CAPTOPRIL [Concomitant]
     Dosage: 12.5 MG, BID
  12. ACCOLATE [Concomitant]
     Dosage: 20 MG, BID
  13. ALBUTEROL [Concomitant]
     Dosage: UNK, PRN

REACTIONS (1)
  - RESPIRATORY ARREST [None]
